FAERS Safety Report 8859087 (Version 2)
Quarter: 2012Q4

REPORT INFORMATION
  Report Type: 
  Country: JP (occurrence: JP)
  Receive Date: 20121024
  Receipt Date: 20121025
  Transmission Date: 20130627
  Serious: No
  Sender: FDA-Public Use
  Company Number: JP-JNJFOC-20121008780

PATIENT

DRUGS (2)
  1. DUROTEP MT [Suspect]
     Indication: PRODUCT USED FOR UNKNOWN INDICATION
     Route: 062
  2. DUROTEP MT [Suspect]
     Indication: PRODUCT USED FOR UNKNOWN INDICATION
     Dosage: (12.5 + 6.25)
     Route: 062

REACTIONS (2)
  - Drug prescribing error [Unknown]
  - Wrong technique in drug usage process [Unknown]
